FAERS Safety Report 8935613 (Version 2)
Quarter: 2012Q4

REPORT INFORMATION
  Report Type: 
  Country: US (occurrence: US)
  Receive Date: 20121130
  Receipt Date: 20121226
  Transmission Date: 20130627
  Serious: Yes (Hospitalization)
  Sender: FDA-Public Use
  Company Number: US-BAYER-2012-124927

PATIENT
  Age: 19 Year
  Sex: Female
  Weight: 61.22 kg

DRUGS (10)
  1. YAZ [Suspect]
     Indication: ACNE
     Dosage: UNK
     Dates: start: 2006, end: 20081008
  2. PREDNISONE [Concomitant]
     Indication: SKIN DISORDER NOS
     Dosage: 20 mg, QD
     Route: 048
     Dates: start: 200810
  3. PROZAC [Concomitant]
     Dosage: 20 mg, Daily
     Route: 048
  4. ERYTHROMYCIN [Concomitant]
     Indication: SKIN DISORDER NOS
     Dosage: UNK
     Dates: end: 20081005
  5. ALBUTEROL [Concomitant]
  6. LEVAQUIN [Concomitant]
  7. SINGULAIR [Concomitant]
  8. CLINDAMYCIN [Concomitant]
  9. ZITHROMAX [Concomitant]
     Indication: SKIN LESION
  10. YASMIN [Suspect]
     Indication: ACNE

REACTIONS (9)
  - Pulmonary embolism [None]
  - Pneumothorax [None]
  - Injury [None]
  - Pain [None]
  - Anxiety [None]
  - Anhedonia [None]
  - Dyspnoea [None]
  - Chest pain [None]
  - Back pain [None]
